FAERS Safety Report 7255858-8 (Version None)
Quarter: 2011Q1

REPORT INFORMATION
  Report Type: 
  Country: None (occurrence: None)
  Receive Date: 20110129
  Receipt Date: 20100504
  Transmission Date: 20110831
  Serious: No
  Sender: FDA-Public Use
  Company Number: US-ABBOTT-10P-163-0637257-00

PATIENT
  Age: 42 Year
  Sex: Male

DRUGS (1)
  1. HUMIRA [Suspect]
     Indication: PSORIASIS
     Dates: start: 20090101, end: 20100407

REACTIONS (6)
  - RASH PRURITIC [None]
  - ACARODERMATITIS [None]
  - RASH [None]
  - MYCOTIC ALLERGY [None]
  - ANTINUCLEAR ANTIBODY INCREASED [None]
  - ANTINUCLEAR ANTIBODY POSITIVE [None]
